FAERS Safety Report 10901914 (Version 2)
Quarter: 2015Q2

REPORT INFORMATION
  Report Type: Spontaneous
  Country: US (occurrence: US)
  Receive Date: 20150310
  Receipt Date: 20150522
  Transmission Date: 20150821
  Serious: Yes (Hospitalization, Other)
  Sender: FDA-Public Use
  Company Number: US-PFIZER INC-2015081772

PATIENT
  Age: 40 Year
  Sex: Female
  Weight: 129 kg

DRUGS (12)
  1. RAPAMUNE [Suspect]
     Active Substance: SIROLIMUS
     Indication: POSTOPERATIVE CARE
  2. TRAMADOL [Concomitant]
     Active Substance: TRAMADOL
     Dosage: 100 MG, 2X/DAY (50 MG, TABLET, 2 TABLETS AT BED TIME AND 2 TABLETS IN THE MORNING)
  3. MYCOPHENOLATE MOFETIL. [Concomitant]
     Active Substance: MYCOPHENOLATE MOFETIL
     Dosage: 1500 MG, DAILY (TWO TABLETS IN THE MORNING AND ONE TABLET IN NIGHT)
  4. ATORVASTATIN [Concomitant]
     Active Substance: ATORVASTATIN
     Indication: BLOOD CHOLESTEROL INCREASED
     Dosage: 180 MG, DAILY
  5. LEVOTHYROXINE [Concomitant]
     Active Substance: LEVOTHYROXINE
     Indication: THYROID DISORDER
     Dosage: 425 ?G (TWO PILLS OF 200 MICROGRAMS AND A 25 MICROGRAMS TABLET ONCE DAILY), DAILY
  6. ESCITALOPRAM [Concomitant]
     Active Substance: ESCITALOPRAM OXALATE
     Dosage: 40 MG, DAILY
  7. RANITIDINE [Concomitant]
     Active Substance: RANITIDINE\RANITIDINE HYDROCHLORIDE
     Dosage: 150 MG, 2X/DAY
  8. WARFARIN [Concomitant]
     Active Substance: WARFARIN
     Dosage: 10 MG, 1X/DAY
  9. FENOFIBRATE. [Concomitant]
     Active Substance: FENOFIBRATE
     Indication: BLOOD CHOLESTEROL INCREASED
     Dosage: 48 MG, 1X/DAY
  10. CLONAZEPAM. [Concomitant]
     Active Substance: CLONAZEPAM
     Dosage: 1 MG, DAILY
  11. RAPAMUNE [Suspect]
     Active Substance: SIROLIMUS
     Indication: RENAL TRANSPLANT
     Dosage: 4 MG, 1X/DAY
     Dates: start: 2000
  12. BUPROPION [Concomitant]
     Active Substance: BUPROPION
     Dosage: 300 MG, DAILY

REACTIONS (1)
  - Diabetes mellitus [Not Recovered/Not Resolved]
